FAERS Safety Report 8382646 (Version 6)
Quarter: 2013Q2

REPORT INFORMATION
  Report Type: Report from Study
  Country: US (occurrence: US)
  Receive Date: 20120201
  Receipt Date: 20130611
  Transmission Date: 20140414
  Serious: Yes (Hospitalization)
  Sender: FDA-Public Use
  Company Number: US-ACTELION-A-NJ2012-60217

PATIENT
  Age: 34 Year
  Sex: Female

DRUGS (18)
  1. TRACLEER [Suspect]
     Indication: PULMONARY ARTERIAL HYPERTENSION
     Dosage: 62.5 MG, BID
     Route: 048
  2. ERYTHROMYCIN [Suspect]
  3. NIFEDIPINE [Suspect]
     Dosage: UNK
     Dates: start: 201201, end: 201201
  4. OMEPRAZOLE [Suspect]
     Dosage: UNK
     Dates: start: 201201, end: 201201
  5. ACETAMINOPHEN [Suspect]
     Dosage: UNK
     Dates: end: 201201
  6. AZITHROMYCIN [Suspect]
     Dosage: UNK
     Dates: start: 201201, end: 201201
  7. CELLCEPT [Suspect]
     Dosage: 1500 MG, BID
     Dates: start: 20111202
  8. REVATIO [Concomitant]
  9. ALBUTEROL [Concomitant]
  10. AMITRIPTYLINE [Concomitant]
  11. CETIRIZINE [Concomitant]
  12. COLACE [Concomitant]
  13. DIGOXIN [Concomitant]
  14. DILAUDID [Concomitant]
  15. PREDNISONE [Concomitant]
  16. PROAIR [Concomitant]
  17. PROTONIX [Concomitant]
  18. SENNA [Concomitant]

REACTIONS (18)
  - Stevens-Johnson syndrome [Not Recovered/Not Resolved]
  - Skin exfoliation [Not Recovered/Not Resolved]
  - Pruritus [Not Recovered/Not Resolved]
  - Pyrexia [Not Recovered/Not Resolved]
  - Swelling [Not Recovered/Not Resolved]
  - Chills [Not Recovered/Not Resolved]
  - Arthralgia [Not Recovered/Not Resolved]
  - Systemic candida [Recovering/Resolving]
  - Oral candidiasis [Recovering/Resolving]
  - Vulvovaginal candidiasis [Recovering/Resolving]
  - Skin candida [Recovering/Resolving]
  - Sepsis [Not Recovered/Not Resolved]
  - Device related infection [Not Recovered/Not Resolved]
  - Feeding tube complication [Not Recovered/Not Resolved]
  - Fall [Not Recovered/Not Resolved]
  - Hepatomegaly [Unknown]
  - Fluid retention [Not Recovered/Not Resolved]
  - Sinusitis [Unknown]
